FAERS Safety Report 8840954 (Version 1)
Quarter: 2012Q4

REPORT INFORMATION
  Report Type: 
  Country: AU (occurrence: AU)
  Receive Date: 20121015
  Receipt Date: 20121015
  Transmission Date: 20130627
  Serious: Yes (Death)
  Sender: FDA-Public Use
  Company Number: AU-ACTELION-A-CH2012-72543

PATIENT
  Age: 69 Year
  Sex: Female
  Weight: 100 kg

DRUGS (11)
  1. TRACLEER [Suspect]
     Indication: PULMONARY ARTERIAL HYPERTENSION
     Dosage: 125 mg, bid
     Route: 048
     Dates: end: 20121006
  2. TRACLEER [Suspect]
     Dosage: 62.5 mg, bid
     Route: 048
     Dates: start: 20101123
  3. MOBIC [Suspect]
  4. GLICLAZIDE [Concomitant]
  5. ASPIRIN [Concomitant]
  6. DIGOXIN [Concomitant]
  7. THYROXINE [Concomitant]
  8. OMEPRAZOLE [Concomitant]
  9. SILDENAFIL [Concomitant]
  10. COLECALCIFEROL [Concomitant]
  11. FRUSEMIDE [Concomitant]

REACTIONS (5)
  - Cardiac failure congestive [Fatal]
  - Renal failure acute [Fatal]
  - Respiratory failure [Fatal]
  - Haematuria [Fatal]
  - Acute pulmonary oedema [Fatal]
